FAERS Safety Report 23785645 (Version 5)
Quarter: 2024Q3

REPORT INFORMATION
  Report Type: Spontaneous
  Country: CA (occurrence: CA)
  Receive Date: 20240425
  Receipt Date: 20240819
  Transmission Date: 20241016
  Serious: Yes (Hospitalization, Other)
  Sender: CELLTRION
  Company Number: CA-CELLTRION INC.-2024CA009320

PATIENT

DRUGS (5)
  1. INFLIXIMAB [Suspect]
     Active Substance: INFLIXIMAB
     Indication: Colitis ulcerative
     Dosage: 120 MG/ML DIRECT AUTO-INJECTOR, 2 WEEKS
     Route: 058
     Dates: start: 20240326
  2. INFLIXIMAB [Suspect]
     Active Substance: INFLIXIMAB
     Dosage: 120 MG/ML 2 WEEKS
     Route: 058
     Dates: start: 20240408
  3. INFLIXIMAB [Suspect]
     Active Substance: INFLIXIMAB
     Dosage: 120MG/ML, Q2WEEKS
     Route: 058
     Dates: start: 20240524
  4. INFLIXIMAB [Suspect]
     Active Substance: INFLIXIMAB
     Dosage: 120MG/ML WEEKLY
     Route: 058
     Dates: start: 20240710
  5. PREDNISONE [Concomitant]
     Active Substance: PREDNISONE
     Dosage: 40 MILLIGRAM, TAPERING WEEKLY

REACTIONS (3)
  - Colitis ulcerative [Not Recovered/Not Resolved]
  - Intentional product use issue [Unknown]
  - Therapy non-responder [Unknown]
